FAERS Safety Report 15929501 (Version 1)
Quarter: 2019Q1

REPORT INFORMATION
  Report Type: Spontaneous
  Country: US (occurrence: US)
  Receive Date: 20190206
  Receipt Date: 20190206
  Transmission Date: 20190417
  Serious: Yes (Death)
  Sender: FDA-Public Use
  Company Number: US-LNK INTERNATIONAL, INC.-2062237

PATIENT
  Age: 19 Month
  Sex: Female

DRUGS (1)
  1. DIPHENHYDRAMINE HCL 25MG FILM COATED PINK MINITABS [Suspect]
     Active Substance: DIPHENHYDRAMINE HYDROCHLORIDE

REACTIONS (2)
  - Product administered to patient of inappropriate age [None]
  - Overdose [Fatal]
